FAERS Safety Report 11917974 (Version 2)
Quarter: 2016Q1

REPORT INFORMATION
  Report Type: Spontaneous
  Country: US (occurrence: US)
  Receive Date: 20160114
  Receipt Date: 20160202
  Transmission Date: 20160526
  Serious: Yes (Hospitalization, Other)
  Sender: FDA-Public Use
  Company Number: US-HQ SPECIALTY-US-2016INT000021

PATIENT
  Age: 11 Year
  Sex: Female
  Weight: 35 kg

DRUGS (10)
  1. FENTANYL. [Suspect]
     Active Substance: FENTANYL
     Dosage: 72 UG/KG (3 UG/KG,1 IN 1 H)
  2. DEXMEDETOMIDINE HYDROCHLORIDE. [Suspect]
     Active Substance: DEXMEDETOMIDINE HYDROCHLORIDE
     Indication: PRODUCT USED FOR UNKNOWN INDICATION
     Dosage: STARTING DOSE (1 UG/KG, 1 IN 1 H)
  3. DEXMEDETOMIDINE HYDROCHLORIDE. [Suspect]
     Active Substance: DEXMEDETOMIDINE HYDROCHLORIDE
     Dosage: 14.4 UG/KG (0.6 UG/KG,1 IN 1 H)
  4. FENTANYL. [Suspect]
     Active Substance: FENTANYL
     Dosage: 52.8 UG/KG (2.2 UG/KG,1 IN 1 H)
  5. DEXMEDETOMIDINE HYDROCHLORIDE. [Suspect]
     Active Substance: DEXMEDETOMIDINE HYDROCHLORIDE
     Dosage: 16.8 UG/KG (0.7 UG/KG, 1 IN 1 H)
  6. FENTANYL. [Suspect]
     Active Substance: FENTANYL
     Dosage: 48 UG/KG (2 UG/KG,1 IN 1 H)
  7. DEXMEDETOMIDINE HYDROCHLORIDE. [Suspect]
     Active Substance: DEXMEDETOMIDINE HYDROCHLORIDE
     Dosage: 12 UG/KG (0.5 UG/KG,1 IN 1 H)
  8. FENTANYL. [Suspect]
     Active Substance: FENTANYL
     Dosage: 52.8 UG/KG (2.2 UG/KG,1 IN 1 H)
  9. DEXMEDETOMIDINE HYDROCHLORIDE. [Suspect]
     Active Substance: DEXMEDETOMIDINE HYDROCHLORIDE
     Dosage: 16.8 UG/KG (0.7 UG/KG,1 IN 1 H)
  10. FENTANYL. [Suspect]
     Active Substance: FENTANYL
     Indication: PRODUCT USED FOR UNKNOWN INDICATION
     Dosage: 48 UG/KG (2 UG/KG,1 IN 1 H)

REACTIONS (4)
  - Posterior reversible encephalopathy syndrome [Recovering/Resolving]
  - Drug withdrawal syndrome [Recovering/Resolving]
  - Drug administered to patient of inappropriate age [Unknown]
  - Withdrawal hypertension [Recovering/Resolving]
